FAERS Safety Report 10255246 (Version 1)
Quarter: 2014Q2

REPORT INFORMATION
  Report Type: Report from Study
  Country: US (occurrence: US)
  Receive Date: 20140624
  Receipt Date: 20140624
  Transmission Date: 20141212
  Serious: Yes (Other)
  Sender: FDA-Public Use
  Company Number: PHEH2014US012418

PATIENT
  Age: 81 Year
  Sex: Female

DRUGS (2)
  1. AFINITOR [Suspect]
     Indication: NEOPLASM MALIGNANT
     Dosage: 10 MG, ONCE DAILY
     Route: 048
  2. SANDOSTATIN LAR DEPOT [Suspect]
     Dosage: 1 DF, QMO

REACTIONS (2)
  - Herpes zoster [Unknown]
  - Malignant neoplasm progression [Unknown]
